FAERS Safety Report 9973925 (Version 2)
Quarter: 2014Q1

REPORT INFORMATION
  Report Type: Report from Study
  Country: US (occurrence: US)
  Receive Date: 20140306
  Receipt Date: 20140306
  Transmission Date: 20141002
  Serious: Yes (Other)
  Sender: FDA-Public Use
  Company Number: US-ABBVIE-13P-163-1154871-00

PATIENT
  Sex: Female

DRUGS (5)
  1. HUMIRA [Suspect]
     Indication: PSORIATIC ARTHROPATHY
     Dates: start: 2007, end: 201302
  2. METHOTREXATE [Suspect]
     Indication: PRODUCT USED FOR UNKNOWN INDICATION
     Dates: end: 201302
  3. ENBREL [Suspect]
     Indication: PRODUCT USED FOR UNKNOWN INDICATION
     Dates: end: 201308
  4. GABAPENTIN [Concomitant]
     Indication: INSOMNIA
  5. GABAPENTIN [Concomitant]
     Indication: PAIN

REACTIONS (9)
  - Hysterectomy [Not Recovered/Not Resolved]
  - Female sterilisation [Unknown]
  - Breast prosthesis implantation [Unknown]
  - Psoriasis [Unknown]
  - Nausea [Unknown]
  - Hypophagia [Unknown]
  - Fatigue [Unknown]
  - Asthenia [Unknown]
  - Psoriasis [Not Recovered/Not Resolved]
